FAERS Safety Report 15884692 (Version 1)
Quarter: 2019Q1

REPORT INFORMATION
  Report Type: Spontaneous
  Country: US (occurrence: US)
  Receive Date: 20190129
  Receipt Date: 20190129
  Transmission Date: 20190417
  Serious: Yes (Other)
  Sender: FDA-Public Use
  Company Number: US-AMREGENT-20182246

PATIENT
  Age: 40 Year
  Sex: Female
  Weight: 66.2 kg

DRUGS (1)
  1. INJECTAFER [Suspect]
     Active Substance: FERRIC CARBOXYMALTOSE
     Dosage: 750 MG WEEKLY
     Route: 040
     Dates: start: 20181101, end: 20181101

REACTIONS (4)
  - Throat irritation [Unknown]
  - Hypoaesthesia [Unknown]
  - Back pain [Unknown]
  - Abdominal pain upper [Unknown]

NARRATIVE: CASE EVENT DATE: 20181101
